FAERS Safety Report 26151948 (Version 1)
Quarter: 2025Q4

REPORT INFORMATION
  Report Type: Report from Study
  Country: EU (occurrence: EU)
  Receive Date: 20251214
  Receipt Date: 20251214
  Transmission Date: 20260118
  Serious: Yes (Death, Hospitalization)
  Sender: ABBVIE
  Company Number: EU-ABBVIE-6468565

PATIENT
  Age: 65 Year
  Sex: Male

DRUGS (2)
  1. FOSCARBIDOPA\FOSLEVODOPA [Suspect]
     Active Substance: FOSCARBIDOPA\FOSLEVODOPA
     Indication: Parkinson^s disease
     Dosage: LD: UNKNOWN  CR: LOW:0.35ML/H  BASE:0.43ML/H  HIGH: 0.45ML/H ED: UNKNOWN.?LAST ADMIN DATE: 2025
     Route: 058
     Dates: start: 20250708
  2. FOSCARBIDOPA\FOSLEVODOPA [Suspect]
     Active Substance: FOSCARBIDOPA\FOSLEVODOPA
     Dosage: LD: UNKNOWN CR: LOW:0.37ML/H BASE:0.44ML/H HIGH: 0.46ML/H ED: UNKNOWN
     Route: 058
     Dates: start: 2025

REACTIONS (6)
  - Cardiac arrest [Fatal]
  - Asthenia [Recovering/Resolving]
  - Speech disorder [Not Recovered/Not Resolved]
  - Dyspnoea [Unknown]
  - Stress [Not Recovered/Not Resolved]
  - Malaise [Unknown]

NARRATIVE: CASE EVENT DATE: 20250101
